FAERS Safety Report 16837626 (Version 11)
Quarter: 2020Q4

REPORT INFORMATION
  Report Type: Spontaneous
  Country: CA (occurrence: CA)
  Receive Date: 20190923
  Receipt Date: 20201223
  Transmission Date: 20210113
  Serious: Yes (Hospitalization, Other)
  Sender: FDA-Public Use
  Company Number: CA-CELLTRION INC.-2019CA023317

PATIENT

DRUGS (23)
  1. INFLECTRA [Suspect]
     Active Substance: INFLIXIMAB-DYYB
     Dosage: 760 MG, (10 MG/KG) AT  0, 2, 6, THEN EVERY 6 WEEKS
     Route: 042
     Dates: start: 20200109
  2. INFLECTRA [Suspect]
     Active Substance: INFLIXIMAB-DYYB
     Dosage: 760 MG, (10 MG/KG) AT  0, 2, 6, THEN EVERY 6 WEEKS
     Route: 042
     Dates: start: 20200806
  3. IRON [Concomitant]
     Active Substance: IRON
     Dosage: UNK
     Route: 065
  4. INFLECTRA [Suspect]
     Active Substance: INFLIXIMAB-DYYB
     Indication: COLITIS ULCERATIVE
     Dosage: 760 MG, (10 MG/KG) AT  0, 2, 6, THEN EVERY 6 WEEKS
     Route: 042
     Dates: start: 20190718
  5. INFLECTRA [Suspect]
     Active Substance: INFLIXIMAB-DYYB
     Dosage: 760 MG, (10 MG/KG) AT  0, 2, 6, THEN EVERY 6 WEEKS
     Route: 042
     Dates: start: 20190806
  6. PANTOPRAZOLE [Concomitant]
     Active Substance: PANTOPRAZOLE
     Dosage: UNK
     Route: 065
  7. MEZAVANT [Concomitant]
     Active Substance: MESALAMINE
     Dosage: 1200 MG 2 TABS OD
     Route: 065
  8. ACETAMINOPHEN. [Concomitant]
     Active Substance: ACETAMINOPHEN
     Indication: PREMEDICATION
     Dosage: 650 MG
     Route: 048
     Dates: start: 20200806, end: 20200806
  9. INFLECTRA [Suspect]
     Active Substance: INFLIXIMAB-DYYB
     Dosage: 760 MG, (10 MG/KG) AT  0, 2, 6, THEN EVERY 6 WEEKS
     Route: 042
     Dates: start: 20200218
  10. INFLECTRA [Suspect]
     Active Substance: INFLIXIMAB-DYYB
     Dosage: 760 MG, (10 MG/KG) AT  0, 2, 6, THEN EVERY 6 WEEKS
     Route: 042
     Dates: start: 20200218
  11. VITAMIN B1 [Concomitant]
     Active Substance: THIAMINE HYDROCHLORIDE
     Dosage: 100 MG, 1X/DAY
     Route: 065
  12. INFLECTRA [Suspect]
     Active Substance: INFLIXIMAB-DYYB
     Dosage: 760 MG, (10 MG/KG) AT  0, 2, 6, THEN EVERY 6 WEEKS
     Route: 042
     Dates: start: 20190903
  13. INFLECTRA [Suspect]
     Active Substance: INFLIXIMAB-DYYB
     Dosage: 760 MG, (10 MG/KG) AT  0, 2, 6, THEN EVERY 6 WEEKS
     Route: 042
     Dates: start: 20191126
  14. INFLECTRA [Suspect]
     Active Substance: INFLIXIMAB-DYYB
     Dosage: 760 MG, (10 MG/KG) AT  0, 2, 6, THEN EVERY 6 WEEKS
     Route: 042
     Dates: start: 20200917
  15. LEUCOVORIN [CALCIUM FOLINATE] [Concomitant]
     Active Substance: LEUCOVORIN
     Dosage: 5 MG, WEEKLY (2 TABS)
     Route: 048
  16. CALCIUM [Concomitant]
     Active Substance: CALCIUM
     Dosage: UNK
     Route: 065
  17. JAMP-VITAMIN D [Concomitant]
     Dosage: 10000 IU, WEEKLY
     Route: 065
  18. MEZAVANT [Concomitant]
     Active Substance: MESALAMINE
     Dosage: 2 DF, 1X/DAY
     Route: 065
  19. INFLECTRA [Suspect]
     Active Substance: INFLIXIMAB-DYYB
     Dosage: 760 MG, (10 MG/KG) AT  0, 2, 6, THEN EVERY 6 WEEKS
     Route: 042
     Dates: start: 20191015
  20. INFLECTRA [Suspect]
     Active Substance: INFLIXIMAB-DYYB
     Dosage: 760 MG, (10 MG/KG) AT  0, 2, 6, THEN EVERY 6 WEEKS
     Route: 042
     Dates: start: 20200625
  21. BISOPROLOL [Concomitant]
     Active Substance: BISOPROLOL
     Dosage: UNK
     Route: 065
  22. PREDNISONE TEVA [Concomitant]
     Active Substance: PREDNISONE
     Dosage: 5 MG, UNK (TAPERING)
     Route: 065
  23. DIPHENHYDRAMINE. [Concomitant]
     Active Substance: DIPHENHYDRAMINE
     Indication: PREMEDICATION
     Dosage: 25 MG
     Route: 042
     Dates: start: 20200806, end: 20200806

REACTIONS (15)
  - Vomiting [Recovered/Resolved]
  - Off label use [Unknown]
  - Condition aggravated [Not Recovered/Not Resolved]
  - Ear neoplasm [Unknown]
  - Drug ineffective [Unknown]
  - Abdominal pain lower [Recovered/Resolved]
  - Asthenia [Not Recovered/Not Resolved]
  - Nephrolithiasis [Unknown]
  - Fatigue [Unknown]
  - Off label use [Unknown]
  - Anal abscess [Recovered/Resolved]
  - Blood pressure increased [Unknown]
  - Dysuria [Recovered/Resolved]
  - Dementia [Unknown]
  - Heart rate irregular [Unknown]

NARRATIVE: CASE EVENT DATE: 201907
